FAERS Safety Report 15546222 (Version 3)
Quarter: 2019Q2

REPORT INFORMATION
  Report Type: Spontaneous
  Country: US (occurrence: US)
  Receive Date: 20181024
  Receipt Date: 20190628
  Transmission Date: 20190711
  Serious: No
  Sender: FDA-Public Use
  Company Number: US-ASTRAZENECA-2018SF25409

PATIENT
  Age: 80 Year
  Sex: Male

DRUGS (1)
  1. BYDUREON [Suspect]
     Active Substance: EXENATIDE
     Indication: DIABETES MELLITUS
     Route: 058
     Dates: start: 2018

REACTIONS (10)
  - Nervousness [Recovering/Resolving]
  - Device leakage [Unknown]
  - Hypoacusis [Not Recovered/Not Resolved]
  - Injection site pain [Recovered/Resolved]
  - Wrong technique in device usage process [Recovered/Resolved]
  - Device malfunction [Unknown]
  - Incorrect dose administered [Unknown]
  - Constipation [Not Recovered/Not Resolved]
  - Injection site mass [Recovering/Resolving]
  - Intentional device misuse [Unknown]

NARRATIVE: CASE EVENT DATE: 2018
